FAERS Safety Report 12943138 (Version 2)
Quarter: 2016Q4

REPORT INFORMATION
  Report Type: Spontaneous
  Country: US (occurrence: US)
  Receive Date: 20161115
  Receipt Date: 20161229
  Transmission Date: 20170207
  Serious: Yes (Hospitalization, Other)
  Sender: FDA-Public Use
  Company Number: US-PFIZER INC-2016526652

PATIENT
  Age: 72 Year
  Sex: Female
  Weight: 61 kg

DRUGS (4)
  1. DECADRON [Concomitant]
     Active Substance: DEXAMETHASONE
     Dosage: UNK
  2. PREDNISONE. [Concomitant]
     Active Substance: PREDNISONE
     Indication: TRANSPLANT
     Dosage: UNK
  3. CELLCEPT [Concomitant]
     Active Substance: MYCOPHENOLATE MOFETIL\MYCOPHENOLATE MOFETIL HYDROCHLORIDE
     Dosage: UNK
  4. RAPAMUNE [Suspect]
     Active Substance: SIROLIMUS
     Indication: RENAL TRANSPLANT
     Dosage: 4 MG, 1X/DAY
     Route: 048
     Dates: start: 19991106

REACTIONS (14)
  - Lethargy [Unknown]
  - Intracranial mass [Unknown]
  - Speech disorder [Unknown]
  - Cerebrovascular accident [Recovered/Resolved with Sequelae]
  - Hypoaesthesia [Unknown]
  - Transient ischaemic attack [Unknown]
  - Asthenia [Unknown]
  - Condition aggravated [Unknown]
  - General physical health deterioration [Unknown]
  - Syncope [Unknown]
  - Nervous system disorder [Unknown]
  - Paralysis [Unknown]
  - Encephalitis [Unknown]
  - Toxoplasmosis [Unknown]

NARRATIVE: CASE EVENT DATE: 201608
